FAERS Safety Report 4682547-6 (Version None)
Quarter: 2005Q2

REPORT INFORMATION
  Report Type: 
  Country: None (occurrence: None)
  Receive Date: 20050606
  Receipt Date: 20041207
  Transmission Date: 20051028
  Serious: Yes (Life-Threatening, Hospitalization)
  Sender: FDA-Public Use
  Company Number: NO-MERCK-0412NOR00011

PATIENT
  Age: 49 Year
  Sex: Female

DRUGS (6)
  1. VIOXX [Suspect]
     Indication: FIBROMYALGIA
     Route: 048
     Dates: start: 20030201, end: 20041107
  2. VIOXX [Suspect]
     Route: 048
     Dates: start: 20010201, end: 20030201
  3. VIOXX [Suspect]
     Indication: MENSTRUAL DISCOMFORT
     Route: 048
     Dates: start: 20030201, end: 20041107
  4. VIOXX [Suspect]
     Route: 048
     Dates: start: 20010201, end: 20030201
  5. PAROXETINE HYDROCHLORIDE [Concomitant]
     Indication: DEPRESSION
     Route: 048
  6. CIMETIDINE [Concomitant]
     Route: 065

REACTIONS (1)
  - CEREBROVASCULAR ACCIDENT [None]
